FAERS Safety Report 23599970 (Version 1)
Quarter: 2024Q1

REPORT INFORMATION
  Report Type: Spontaneous
  Country: US (occurrence: US)
  Receive Date: 20240306
  Receipt Date: 20240306
  Transmission Date: 20240410
  Serious: No
  Sender: FDA-Public Use
  Company Number: US-BAUSCH-BL-2024-003362

PATIENT
  Age: 78 Year
  Sex: Female

DRUGS (3)
  1. XIFAXAN [Suspect]
     Active Substance: RIFAXIMIN
     Indication: Irritable bowel syndrome
     Dosage: 4-5 YEARS PRIOR
     Route: 065
  2. XIFAXAN [Suspect]
     Active Substance: RIFAXIMIN
     Dosage: YEAR AND A HALF PRIOR
     Route: 065
     Dates: start: 2022, end: 2022
  3. COLESEVELAM [Concomitant]
     Active Substance: COLESEVELAM
     Indication: Gastrointestinal disorder
     Dosage: IN THE MORNING

REACTIONS (5)
  - Ill-defined disorder [Unknown]
  - Anal incontinence [Unknown]
  - Diplopia [Unknown]
  - Diarrhoea [Unknown]
  - Product use issue [Unknown]
